FAERS Safety Report 22204216 (Version 1)
Quarter: 2023Q2

REPORT INFORMATION
  Report Type: Other
  Country: US (occurrence: US)
  Receive Date: 20230412
  Receipt Date: 20230412
  Transmission Date: 20230722
  Serious: Yes (Other)
  Sender: FDA-Public Use
  Company Number: US-NEUROCRINE BIOSCIENCES INC.-2023NBI02491

PATIENT

DRUGS (1)
  1. INGREZZA [Suspect]
     Active Substance: VALBENAZINE
     Indication: Tardive dyskinesia
     Dosage: 40 MILLIGRAM, QD (AS NEEDED)
     Route: 048
     Dates: start: 20230320, end: 20230329

REACTIONS (5)
  - Suicidal ideation [Recovered/Resolved]
  - Hallucination, visual [Recovered/Resolved]
  - Emotional distress [Recovered/Resolved]
  - Tardive dyskinesia [Unknown]
  - Off label use [Unknown]

NARRATIVE: CASE EVENT DATE: 20230320
